FAERS Safety Report 9458108 (Version 9)
Quarter: 2014Q1

REPORT INFORMATION
  Report Type: Report from Study
  Country: FR (occurrence: FR)
  Receive Date: 20130814
  Receipt Date: 20140306
  Transmission Date: 20141002
  Serious: Yes (Hospitalization, Other)
  Sender: FDA-Public Use
  Company Number: FR-ROCHE-1251600

PATIENT
  Age: 68 Year
  Sex: Female
  Weight: 39 kg

DRUGS (18)
  1. RIBAVIRIN [Suspect]
     Indication: CHRONIC HEPATITIS C
     Dosage: 1000 MG (200 MG 5 TIMES IN A DAY)
     Route: 048
     Dates: start: 20130507, end: 20130611
  2. RIBAVIRIN [Suspect]
     Route: 048
     Dates: start: 20130612, end: 20130703
  3. BI 207127 [Suspect]
     Indication: CHRONIC HEPATITIS C
     Route: 048
     Dates: start: 20130507, end: 20130703
  4. BI 201335 [Suspect]
     Indication: CHRONIC HEPATITIS C
     Route: 048
     Dates: start: 20130507, end: 20130703
  5. LASILIX [Concomitant]
     Dosage: IN THE MORNING
     Route: 065
  6. COVERSYL [Concomitant]
     Dosage: 1 TABLET IN MORNING
     Route: 065
  7. MONO TILDIEM [Concomitant]
     Dosage: 1 CAPSULE IN MORNING
     Route: 065
  8. COUMADINE [Concomitant]
     Dosage: 1 TABLET IN MORNING
     Route: 065
  9. INEXIUM [Concomitant]
     Dosage: 1 TABLET IN THE EVENING
     Route: 065
  10. LOPERAMIDE [Concomitant]
     Indication: DIARRHOEA
     Dosage: 1 CAPSULE IN CASE OF DIARRHEA, MAXIMUM 6 PER DAY
     Route: 048
     Dates: start: 20130609
  11. ONDANSETRON [Concomitant]
     Indication: NAUSEA
     Dosage: IN CASE ON VOMITING 8 MG, 1 TABLET IN A DAY
     Route: 065
     Dates: start: 20130522
  12. ONDANSETRON [Concomitant]
     Indication: VOMITING
  13. PARACETAMOL [Concomitant]
     Indication: HEADACHE
     Dosage: IN CASE OF PAIN 1 GM 1 IN 6 HR.
     Route: 065
  14. PARACETAMOL [Concomitant]
     Indication: PAIN
  15. ESOMEPRAZOLE [Concomitant]
     Indication: PROPHYLAXIS
     Route: 048
  16. FUROSEMIDE [Concomitant]
     Indication: CARDIAC FAILURE
     Route: 048
  17. PERINDOPRIL ARGININE [Concomitant]
     Indication: CARDIAC FAILURE
     Route: 048
  18. DILTIAZEM CLORHIDRATO [Concomitant]
     Indication: ANGINA PECTORIS
     Route: 048

REACTIONS (6)
  - Hyperbilirubinaemia [Recovered/Resolved]
  - Anaemia [Not Recovered/Not Resolved]
  - Renal failure [Recovered/Resolved]
  - Gastrointestinal haemorrhage [Recovered/Resolved]
  - Haematoma [Recovered/Resolved]
  - Pyelonephritis [Recovered/Resolved]
